FAERS Safety Report 4639170-9 (Version None)
Quarter: 2005Q2

REPORT INFORMATION
  Report Type: 
  Country: None (occurrence: None)
  Receive Date: 20050418
  Receipt Date: 20050407
  Transmission Date: 20051028
  Serious: Yes (Hospitalization)
  Sender: FDA-Public Use
  Company Number: 2005PK00574

PATIENT
  Age: 68 Year
  Sex: Female
  Weight: 105 kg

DRUGS (5)
  1. NOLVADEX [Suspect]
     Indication: BREAST CANCER
     Dosage: 20 MG DAILY PO
     Route: 048
     Dates: start: 20020320
  2. DUSPATAL [Concomitant]
  3. KERLONE [Concomitant]
  4. PREDNISOLONE [Concomitant]
  5. NIFEHAXAL [Concomitant]

REACTIONS (2)
  - HYSTEROSCOPY [None]
  - UTERINE DILATION AND CURETTAGE [None]
